FAERS Safety Report 5493210-6 (Version None)
Quarter: 2007Q4

REPORT INFORMATION
  Report Type: 
  Country: None (occurrence: None)
  Receive Date: 20071023
  Receipt Date: 20071012
  Transmission Date: 20080405
  Serious: Yes (Life-Threatening)
  Sender: FDA-Public Use
  Company Number: B0486725A

PATIENT
  Age: 26 Year
  Sex: Female
  Weight: 68 kg

DRUGS (3)
  1. TAXOL [Suspect]
     Indication: BREAST CANCER
     Dosage: 140MG WEEKLY
     Dates: start: 20070720, end: 20070720
  2. TRASTUZUMAB [Suspect]
     Indication: BREAST CANCER
  3. VINORELBINE [Concomitant]
     Indication: CHEMOTHERAPY

REACTIONS (5)
  - ABDOMINAL PAIN UPPER [None]
  - ANAPHYLACTIC REACTION [None]
  - DYSPNOEA [None]
  - HYPERHIDROSIS [None]
  - TACHYCARDIA [None]
